FAERS Safety Report 5460667-6 (Version None)
Quarter: 2007Q3

REPORT INFORMATION
  Report Type: 
  Country: None (occurrence: None)
  Receive Date: 20070919
  Receipt Date: 20070911
  Transmission Date: 20080115
  Serious: Yes (Other)
  Sender: FDA-Public Use
  Company Number: B0487543A

PATIENT
  Age: 51 Year
  Sex: Male

DRUGS (1)
  1. NYTOL [Suspect]

REACTIONS (1)
  - INTENTIONAL OVERDOSE [None]
